FAERS Safety Report 10977654 (Version 1)
Quarter: 2015Q1

REPORT INFORMATION
  Report Type: Spontaneous
  Country: TR (occurrence: None)
  Receive Date: 20150330
  Receipt Date: 20150330
  Transmission Date: 20150721
  Serious: Yes (Other)
  Sender: FDA-Public Use
  Company Number: TR2015GSK039150

PATIENT
  Age: 53 Year
  Sex: Female

DRUGS (3)
  1. ZEFLIX (LAMLVUDINE) UNKNOWN [Suspect]
     Active Substance: LAMIVUDINE
     Indication: CHRONIC HEPATITIS B
     Dosage: 100 MG, QD, FOR 24 MONTHS, MONOTHERAPY
     Route: 050
  2. BARACLUDE (ENTECAVIR) [Suspect]
     Active Substance: ENTECAVIR
     Indication: CHRONIC HEPATITIS B
     Dosage: 1 MG, QD FOR 18 MONTHS, MONOTHERAPY
     Route: 050
  3. VIREAD [Suspect]
     Active Substance: TENOFOVIR DISOPROXIL FUMARATE
     Indication: CHRONIC HEPATITIS B
     Dosage: 245 MG, QD, FOR 3 MONTHS, MONOTHERAPY
     Route: 050

REACTIONS (2)
  - Pathogen resistance [None]
  - Gene mutation [None]
